FAERS Safety Report 7024151-0 (Version None)
Quarter: 2010Q3

REPORT INFORMATION
  Report Type: 
  Country: None (occurrence: None)
  Receive Date: 20100929
  Receipt Date: 20100916
  Transmission Date: 20110219
  Serious: Yes (Life-Threatening, Hospitalization)
  Sender: FDA-Public Use
  Company Number: A-US2010-39197

PATIENT
  Age: 62 Year
  Sex: Male

DRUGS (2)
  1. TRACLEER [Suspect]
     Indication: PULMONARY ARTERIAL HYPERTENSION
     Dosage: MG, ORAL
     Route: 048
     Dates: start: 20090430
  2. LASIX [Concomitant]

REACTIONS (6)
  - ANAEMIA [None]
  - OEDEMA [None]
  - PULMONARY OEDEMA [None]
  - RED BLOOD CELL COUNT DECREASED [None]
  - SWELLING [None]
  - WEIGHT INCREASED [None]
